FAERS Safety Report 13264754 (Version 2)
Quarter: 2017Q1

REPORT INFORMATION
  Report Type: Spontaneous
  Country: HK (occurrence: HK)
  Receive Date: 20170223
  Receipt Date: 20170316
  Transmission Date: 20170428
  Serious: Yes (Other)
  Sender: FDA-Public Use
  Company Number: HK-ABBVIE-17P-075-1883067-00

PATIENT
  Sex: Female

DRUGS (10)
  1. FOLIC ACID. [Concomitant]
     Active Substance: FOLIC ACID
     Indication: PRODUCT USED FOR UNKNOWN INDICATION
     Route: 065
     Dates: start: 20140221, end: 20160121
  2. SODIUM CHLORIDE. [Concomitant]
     Active Substance: SODIUM CHLORIDE
     Indication: PRODUCT USED FOR UNKNOWN INDICATION
     Route: 065
     Dates: start: 20160221
  3. EPILIM EC [Suspect]
     Active Substance: VALPROATE SODIUM
     Route: 048
     Dates: start: 201701
  4. EPILIM EC [Suspect]
     Active Substance: VALPROATE SODIUM
     Route: 048
  5. FERRUM HAUSMANN [Concomitant]
     Active Substance: FERROUS FUMARATE
     Indication: PRODUCT USED FOR UNKNOWN INDICATION
     Route: 065
     Dates: start: 20140221
  6. EPILIM EC [Suspect]
     Active Substance: VALPROATE SODIUM
     Indication: EPILEPSY
     Route: 048
     Dates: start: 20140221, end: 20150319
  7. EPILIM EC [Suspect]
     Active Substance: VALPROATE SODIUM
     Route: 048
     Dates: start: 20150911, end: 201701
  8. EPILIM EC [Suspect]
     Active Substance: VALPROATE SODIUM
     Route: 048
     Dates: start: 20150320, end: 20150528
  9. EPILIM EC [Suspect]
     Active Substance: VALPROATE SODIUM
     Route: 048
     Dates: start: 20150529, end: 20150910
  10. TEARS NATURALE FREE [Concomitant]
     Active Substance: DEXTRAN 70\HYPROMELLOSE 2910 (4000 MPA.S)
     Indication: PRODUCT USED FOR UNKNOWN INDICATION
     Route: 065
     Dates: start: 20131213

REACTIONS (4)
  - Seizure [Recovered/Resolved]
  - Rash [Recovered/Resolved]
  - Mucosal ulceration [Recovered/Resolved]
  - Visual impairment [Recovered/Resolved]

NARRATIVE: CASE EVENT DATE: 201701
